FAERS Safety Report 4728329-8 (Version None)
Quarter: 2005Q3

REPORT INFORMATION
  Report Type: 
  Country: None (occurrence: None)
  Receive Date: 20050729
  Receipt Date: 20050721
  Transmission Date: 20060218
  Serious: Yes (Death)
  Sender: FDA-Public Use
  Company Number: US-KINGPHARMUSA00001-K200500980

PATIENT
  Age: 78 Year
  Sex: Male

DRUGS (3)
  1. ALTACE [Suspect]
     Indication: HYPERTENSION
     Route: 048
     Dates: start: 20010924, end: 20041013
  2. ASS ^CT-ARZNEIMITTEL^ [Concomitant]
     Route: 048
  3. THYROID MEDICATION NOS [Concomitant]
     Indication: HYPOTHYROIDISM

REACTIONS (7)
  - ENURESIS [None]
  - HAEMORRHAGIC STROKE [None]
  - HEMIPLEGIA [None]
  - INTRAVENTRICULAR HAEMORRHAGE [None]
  - LOSS OF CONSCIOUSNESS [None]
  - RESPIRATORY ARREST [None]
  - SUBARACHNOID HAEMORRHAGE [None]
